FAERS Safety Report 12514072 (Version 1)
Quarter: 2016Q2

REPORT INFORMATION
  Report Type: Spontaneous
  Country: US (occurrence: None)
  Receive Date: 20160629
  Receipt Date: 20160629
  Transmission Date: 20160815
  Serious: Yes (Other)
  Sender: FDA-Public Use
  Company Number: None

PATIENT
  Age: 69 Year
  Sex: Female
  Weight: 81.65 kg

DRUGS (1)
  1. TOPIRAMATE 50 MG [Suspect]
     Active Substance: TOPIRAMATE
     Indication: PARAESTHESIA
     Route: 048
     Dates: start: 20150808, end: 20150930

REACTIONS (1)
  - Urinary retention [None]
